FAERS Safety Report 9406610 (Version 2)
Quarter: 2013Q3

REPORT INFORMATION
  Report Type: Report from Study
  Country: US (occurrence: US)
  Receive Date: 20130718
  Receipt Date: 20130730
  Transmission Date: 20140515
  Serious: Yes (Hospitalization)
  Sender: FDA-Public Use
  Company Number: US-JNJFOC-20130707436

PATIENT
  Age: 17 Year
  Sex: Female
  Weight: 50.3 kg

DRUGS (11)
  1. REMICADE [Suspect]
     Indication: CROHN^S DISEASE
     Route: 042
     Dates: start: 20071123, end: 20100525
  2. 5-ASA [Concomitant]
     Route: 048
  3. 6-MERCAPTOPURINE [Concomitant]
     Route: 065
  4. HUMIRA [Concomitant]
     Indication: CROHN^S DISEASE
     Route: 065
     Dates: start: 20121008
  5. HUMIRA [Concomitant]
     Indication: CROHN^S DISEASE
     Route: 065
     Dates: start: 20130609
  6. HUMIRA [Concomitant]
     Indication: CROHN^S DISEASE
     Route: 065
     Dates: start: 20100601
  7. IRON SUPPLEMENT [Concomitant]
     Route: 065
  8. MULTIPLE VITAMIN [Concomitant]
     Route: 065
  9. PRILOSEC [Concomitant]
     Route: 065
  10. CHOLECALCIFEROL [Concomitant]
     Route: 065
  11. FERROUS GLUCONATE [Concomitant]
     Route: 042

REACTIONS (3)
  - Crohn^s disease [Recovered/Resolved]
  - Postoperative fever [Recovered/Resolved]
  - Postoperative ileus [Recovered/Resolved]
